FAERS Safety Report 15736099 (Version 1)
Quarter: 2018Q4

REPORT INFORMATION
  Report Type: Spontaneous
  Country: PL (occurrence: PL)
  Receive Date: 20181218
  Receipt Date: 20181218
  Transmission Date: 20190205
  Serious: Yes (Other)
  Sender: FDA-Public Use
  Company Number: PL-LANNETT COMPANY, INC.-PL-2018LAN001389

PATIENT
  Age: 61 Year
  Sex: Male

DRUGS (10)
  1. TEMOZOLOMIDE. [Suspect]
     Active Substance: TEMOZOLOMIDE
     Dosage: 320 MG, QD FOR FIVE CONSECUTIVE DAYS (28-DAY CYCLE) (3RD CYCLE)
     Route: 065
  2. TEMOZOLOMIDE. [Suspect]
     Active Substance: TEMOZOLOMIDE
     Dosage: 320 MG, QD FOR FIVE CONSECUTIVE DAYS (28-DAY CYCLE) (2ND CYCLE)
     Route: 065
  3. TEMOZOLOMIDE. [Suspect]
     Active Substance: TEMOZOLOMIDE
     Dosage: 320 MG, QD  FOR FIVE CONSECUTIVE DAYS (28-DAY CYCLE) (6TH CYCLE)
     Route: 065
  4. TEMOZOLOMIDE. [Suspect]
     Active Substance: TEMOZOLOMIDE
     Dosage: 320 MG, QD FOR FIVE CONSECUTIVE DAYS (28-DAY CYCLE) (4TH CYCLE)
     Route: 065
  5. TEMOZOLOMIDE. [Suspect]
     Active Substance: TEMOZOLOMIDE
     Dosage: 320 MG, QD FOR FIVE CONSECUTIVE DAYS (28-DAY CYCLE) (7TH CYCLE)
     Route: 065
  6. TEMOZOLOMIDE. [Suspect]
     Active Substance: TEMOZOLOMIDE
     Dosage: 320 MG, QD FOR FIVE CONSECUTIVE DAYS (28-DAY CYCLE) (5TH CYCLE)
     Route: 065
  7. KETOCONAZOLE. [Concomitant]
     Active Substance: KETOCONAZOLE
     Indication: PRODUCT USED FOR UNKNOWN INDICATION
     Dosage: 300 TO 600 MG PER DAY, QD
     Route: 065
  8. TEMOZOLOMIDE. [Suspect]
     Active Substance: TEMOZOLOMIDE
     Indication: PITUITARY TUMOUR BENIGN
     Dosage: 150?200 MG/M2, QD IN THE MORNING, FOR FIVE CONSECUTIVE DAYS (28-DAY CYCLE)
     Route: 065
     Dates: start: 201504
  9. TEMOZOLOMIDE. [Suspect]
     Active Substance: TEMOZOLOMIDE
     Dosage: 320 MG, QD FOR FIVE CONSECUTIVE DAYS (28-DAY CYCLE) (8TH CYCLE)
     Route: 065
  10. TEMOZOLOMIDE. [Suspect]
     Active Substance: TEMOZOLOMIDE
     Dosage: 320 MG, QD FOR FIVE CONSECUTIVE DAYS (28-DAY CYCLE) (9TH CYCLE)
     Route: 065

REACTIONS (2)
  - Deafness [Unknown]
  - Nausea [Unknown]
